FAERS Safety Report 5049380-7 (Version None)
Quarter: 2006Q2

REPORT INFORMATION
  Report Type: 
  Country: None (occurrence: None)
  Receive Date: 20060613
  Receipt Date: 20060329
  Transmission Date: 20061013
  Serious: No
  Sender: FDA-Public Use
  Company Number: 2006-00714

PATIENT
  Age: 69 Year
  Sex: Female
  Weight: 66.2 kg

DRUGS (1)
  1. VELCADE [Suspect]
     Indication: MULTIPLE MYELOMA

REACTIONS (2)
  - OEDEMA PERIPHERAL [None]
  - RASH PRURITIC [None]
